FAERS Safety Report 13469883 (Version 2)
Quarter: 2017Q2

REPORT INFORMATION
  Report Type: Report from Study
  Country: CA (occurrence: CA)
  Receive Date: 20170422
  Receipt Date: 20170509
  Transmission Date: 20170830
  Serious: Yes (Hospitalization)
  Sender: FDA-Public Use
  Company Number: CA-HLSUS-2017-CA-000257

PATIENT
  Age: 25 Year
  Sex: Male

DRUGS (1)
  1. CLOZARIL [Suspect]
     Active Substance: CLOZAPINE
     Dosage: 500 MG DAILY BED TIME
     Route: 048
     Dates: start: 20100415

REACTIONS (3)
  - Neutrophil count increased [Recovered/Resolved]
  - White blood cell count increased [Recovered/Resolved]
  - Alcoholic pancreatitis [Recovered/Resolved]

NARRATIVE: CASE EVENT DATE: 20170322
